FAERS Safety Report 6389921-0 (Version None)
Quarter: 2009Q4

REPORT INFORMATION
  Report Type: 
  Country: None (occurrence: None)
  Receive Date: 20091006
  Receipt Date: 20090407
  Transmission Date: 20100525
  Serious: No
  Sender: FDA-Public Use
  Company Number: US-BRISTOL-MYERS SQUIBB COMPANY-14579080

PATIENT
  Sex: Male

DRUGS (1)
  1. AVAPRO [Suspect]
     Dosage: 2 DOSAGE FORM = 2 DOSES OF 150 MG INCREASED DAILY DOSE FROM 150MG TO 300MG

REACTIONS (1)
  - HYPOTENSION [None]
